FAERS Safety Report 12338604 (Version 2)
Quarter: 2017Q2

REPORT INFORMATION
  Report Type: Spontaneous
  Country: US (occurrence: US)
  Receive Date: 20160505
  Receipt Date: 20170512
  Transmission Date: 20170830
  Serious: No
  Sender: FDA-Public Use
  Company Number: US-SA-2016SA035434

PATIENT
  Age: 50 Year
  Sex: Male
  Weight: 77.11 kg

DRUGS (10)
  1. APIDRA SOLOSTAR [Suspect]
     Active Substance: INSULIN GLULISINE
     Indication: TYPE 2 DIABETES MELLITUS
     Dosage: AFTER MEALS DOSE:24 UNIT(S)
     Route: 065
  2. LYRICA [Concomitant]
     Active Substance: PREGABALIN
     Indication: NEUROPATHY PERIPHERAL
  3. SOLOSTAR [Suspect]
     Active Substance: DEVICE
     Indication: TYPE 2 DIABETES MELLITUS
     Dosage: FRQ..: 2-3 TIMES DAILY?DOSE: 13-17 UNITS
  4. LANTUS SOLOSTAR [Concomitant]
     Active Substance: INSULIN GLARGINE
  5. SOLOSTAR [Concomitant]
     Active Substance: DEVICE
  6. SOLOSTAR [Suspect]
     Active Substance: DEVICE
     Indication: TYPE 2 DIABETES MELLITUS
     Dates: start: 2014
  7. APIDRA SOLOSTAR [Suspect]
     Active Substance: INSULIN GLULISINE
     Indication: TYPE 2 DIABETES MELLITUS
     Dosage: AFTER MEALS DOSE:24 UNIT(S)
     Route: 065
  8. APIDRA SOLOSTAR [Suspect]
     Active Substance: INSULIN GLULISINE
     Indication: TYPE 2 DIABETES MELLITUS
     Dosage: AFTER MEALS DOSE:24 UNIT(S)
     Route: 065
     Dates: start: 2014
  9. SOLOSTAR [Suspect]
     Active Substance: DEVICE
     Indication: TYPE 2 DIABETES MELLITUS
     Dates: start: 2014
  10. SOLOSTAR [Suspect]
     Active Substance: DEVICE
     Indication: TYPE 2 DIABETES MELLITUS
     Dosage: FRQ..: 2-3 TIMES DAILY?DOSE: 13-17 UNITS

REACTIONS (6)
  - Device issue [Unknown]
  - Visual impairment [Unknown]
  - Injection site mass [Unknown]
  - Incorrect dose administered [Unknown]
  - Injection site pain [Unknown]
  - Blood glucose increased [Unknown]
